FAERS Safety Report 8271034-4 (Version None)
Quarter: 2012Q2

REPORT INFORMATION
  Report Type: 
  Country: None (occurrence: None)
  Receive Date: 20120410
  Receipt Date: 20120330
  Transmission Date: 20120825
  Serious: Yes (Hospitalization)
  Sender: FDA-Public Use
  Company Number: US-AMGEN-QUU376456

PATIENT
  Age: 69 Year
  Sex: Female

DRUGS (2)
  1. METHOTREXATE [Concomitant]
     Dosage: UNK UNK, UNK
     Dates: start: 19970101
  2. ENBREL [Suspect]
     Indication: RHEUMATOID ARTHRITIS
     Dosage: 50 MG, QWK
     Route: 058
     Dates: start: 20080910

REACTIONS (10)
  - SPINAL FUSION SURGERY [None]
  - ASTHENIA [None]
  - OESOPHAGEAL SPASM [None]
  - WEIGHT INCREASED [None]
  - RHEUMATOID ARTHRITIS [None]
  - LARYNGEAL DISORDER [None]
  - DYSPHONIA [None]
  - FIBROMYALGIA [None]
  - FATIGUE [None]
  - XIITH NERVE INJURY [None]
